FAERS Safety Report 6886500-3 (Version None)
Quarter: 2010Q3

REPORT INFORMATION
  Report Type: 
  Country: None (occurrence: None)
  Receive Date: 20100730
  Receipt Date: 20100721
  Transmission Date: 20110219
  Serious: Yes (Hospitalization)
  Sender: FDA-Public Use
  Company Number: US-BIOGENIDEC-2010BI024886

PATIENT
  Age: 67 Year
  Sex: Female

DRUGS (2)
  1. TYSABRI [Suspect]
     Indication: MULTIPLE SCLEROSIS
     Route: 042
     Dates: start: 20071106, end: 20081106
  2. TYSABRI [Suspect]
     Route: 042
     Dates: start: 20090624

REACTIONS (2)
  - CLOSTRIDIUM DIFFICILE COLITIS [None]
  - CYSTITIS [None]
